FAERS Safety Report 11757094 (Version 1)
Quarter: 2015Q4

REPORT INFORMATION
  Report Type: Report from Study
  Country: US (occurrence: US)
  Receive Date: 20151120
  Receipt Date: 20151120
  Transmission Date: 20160304
  Serious: Yes (Other)
  Sender: FDA-Public Use
  Company Number: US-ROCHE-1661554

PATIENT

DRUGS (13)
  1. IFOSFAMIDE. [Suspect]
     Active Substance: IFOSFAMIDE
     Indication: MANTLE CELL LYMPHOMA
     Dosage: 1.5 G/M2 ON DAYS 1-5.
     Route: 065
  2. ETOPOSIDE. [Suspect]
     Active Substance: ETOPOSIDE
     Indication: MANTLE CELL LYMPHOMA
     Dosage: ON DAYS 1-5.
     Route: 065
  3. RITUXIMAB [Suspect]
     Active Substance: RITUXIMAB
     Indication: MANTLE CELL LYMPHOMA
     Dosage: ON DAY 1.
     Route: 042
  4. METHOTREXATE [Suspect]
     Active Substance: METHOTREXATE
     Indication: MANTLE CELL LYMPHOMA
     Dosage: 1.2 G/M2 ON DAY 10 OVER 1 HOUR.
     Route: 042
  5. DOXORUBICIN [Suspect]
     Active Substance: DOXORUBICIN
     Indication: MANTLE CELL LYMPHOMA
     Dosage: ON DAY 1.
     Route: 042
  6. CYCLOPHOSPHAMIDE. [Suspect]
     Active Substance: CYCLOPHOSPHAMIDE
     Dosage: ON DAYS 2-5.
     Route: 042
  7. VINCRISTINE [Suspect]
     Active Substance: VINCRISTINE
     Indication: MANTLE CELL LYMPHOMA
     Dosage: ON DAYS 1 AND 8 (CAPPED AT 2 MG)
     Route: 065
  8. MESNA. [Suspect]
     Active Substance: MESNA
     Indication: MANTLE CELL LYMPHOMA
     Dosage: ON DAY 1 AND CONTINUED EVERY 3 HOURS THROUGH DAY 5 FOR A TOTAL OF 40 DOSES.
     Route: 042
  9. LEUCOVORIN. [Suspect]
     Active Substance: LEUCOVORIN
     Indication: MANTLE CELL LYMPHOMA
     Route: 042
  10. METHOTREXATE [Suspect]
     Active Substance: METHOTREXATE
     Dosage: 5.52 G/M2 OVER 23 HOURS.
     Route: 042
  11. CYCLOPHOSPHAMIDE. [Suspect]
     Active Substance: CYCLOPHOSPHAMIDE
     Indication: MANTLE CELL LYMPHOMA
     Dosage: ON DAY 1.
     Route: 042
  12. CYTARABINE. [Suspect]
     Active Substance: CYTARABINE
     Indication: MANTLE CELL LYMPHOMA
     Dosage: 2 G/M2 EVERY 12 HOURS ON DAYS 1 AND 2.
     Route: 042
  13. LEUCOVORIN. [Suspect]
     Active Substance: LEUCOVORIN
     Dosage: EVERY 6 HOURS FOR AT LEAST 10 DOSES.
     Route: 042

REACTIONS (1)
  - Acute myeloid leukaemia [Unknown]
